FAERS Safety Report 23568736 (Version 2)
Quarter: 2024Q1

REPORT INFORMATION
  Report Type: Other
  Country: US (occurrence: None)
  Receive Date: 20240227
  Receipt Date: 20240314
  Transmission Date: 20240410
  Serious: Yes (Other)
  Sender: FDA-Public Use
  Company Number: US-ROCHE-3456222

PATIENT
  Age: 51 Year
  Sex: Female
  Weight: 69.445 kg

DRUGS (33)
  1. XOLAIR [Suspect]
     Active Substance: OMALIZUMAB
     Indication: Idiopathic urticaria
     Route: 058
  2. XOLAIR [Suspect]
     Active Substance: OMALIZUMAB
  3. XOLAIR [Suspect]
     Active Substance: OMALIZUMAB
  4. XOLAIR [Suspect]
     Active Substance: OMALIZUMAB
     Indication: Asthma
     Route: 058
  5. XOLAIR [Suspect]
     Active Substance: OMALIZUMAB
  6. XOLAIR [Suspect]
     Active Substance: OMALIZUMAB
  7. ACYCLOVIR [Concomitant]
     Active Substance: ACYCLOVIR
     Route: 048
     Dates: end: 20240112
  8. BREO ELLIPTA [Concomitant]
     Active Substance: FLUTICASONE FUROATE\VILANTEROL TRIFENATATE
  9. LIOTHYRONINE [Concomitant]
     Active Substance: LIOTHYRONINE
     Route: 048
  10. SINGULAIR [Concomitant]
     Active Substance: MONTELUKAST SODIUM
     Route: 048
     Dates: start: 20190903, end: 20240112
  11. OMEPRAZOLE [Concomitant]
     Active Substance: OMEPRAZOLE
  12. VENTOLIN [Concomitant]
     Active Substance: ALBUTEROL SULFATE
  13. CRESTOR [Concomitant]
     Active Substance: ROSUVASTATIN CALCIUM
     Route: 048
     Dates: end: 20240112
  14. TOPAMAX [Concomitant]
     Active Substance: TOPIRAMATE
     Route: 048
     Dates: end: 20240112
  15. CLARITIN [Concomitant]
     Active Substance: LORATADINE
     Indication: Hypersensitivity
     Route: 048
     Dates: start: 20190812, end: 20240112
  16. FENOFIBRATE [Concomitant]
     Active Substance: FENOFIBRATE
     Route: 048
     Dates: end: 20240112
  17. PROGESTERONE [Concomitant]
     Active Substance: PROGESTERONE
     Route: 048
     Dates: end: 20240112
  18. SERTRALINE [Concomitant]
     Active Substance: SERTRALINE HYDROCHLORIDE
     Route: 048
     Dates: end: 20240112
  19. SERTRALINE [Concomitant]
     Active Substance: SERTRALINE HYDROCHLORIDE
     Route: 048
  20. LIOTHYRONINE [Concomitant]
     Active Substance: LIOTHYRONINE
     Route: 048
     Dates: end: 20240112
  21. TIROSINT [Concomitant]
     Active Substance: LEVOTHYROXINE SODIUM
     Route: 048
     Dates: end: 20240112
  22. XYOSTED [Concomitant]
     Active Substance: TESTOSTERONE ENANTHATE
     Route: 058
     Dates: end: 20240112
  23. ALBUTEROL SULFATE [Concomitant]
     Active Substance: ALBUTEROL SULFATE
     Dosage: INHALE 2 PUFF BY INHALATION ROUTE EVERY 4-6 HOURS AS NEEDED
     Dates: start: 20191015, end: 20240112
  24. AUVI-Q [Concomitant]
     Active Substance: EPINEPHRINE
     Dosage: 0.3 MG/ML
     Route: 030
     Dates: start: 20200103, end: 20240112
  25. MEDROL [Concomitant]
     Active Substance: METHYLPREDNISOLONE
     Route: 048
     Dates: start: 20200103, end: 20240112
  26. VRAYLAR [Concomitant]
     Active Substance: CARIPRAZINE
     Route: 048
  27. SYNTHROID [Concomitant]
     Active Substance: LEVOTHYROXINE SODIUM
  28. TOPIRAMATE [Concomitant]
     Active Substance: TOPIRAMATE
  29. FAMOTIDINE [Concomitant]
     Active Substance: FAMOTIDINE
  30. ESOMEPRAZOLE [Concomitant]
     Active Substance: ESOMEPRAZOLE
     Route: 048
  31. LINZESS [Concomitant]
     Active Substance: LINACLOTIDE
  32. ZYRTEC [Concomitant]
     Active Substance: CETIRIZINE HYDROCHLORIDE
  33. EMGALITY [Concomitant]
     Active Substance: GALCANEZUMAB-GNLM
     Route: 058

REACTIONS (13)
  - Anaphylactic reaction [Unknown]
  - Fatigue [Unknown]
  - Headache [Unknown]
  - Dysphonia [Unknown]
  - Pharyngitis [Unknown]
  - Snoring [Unknown]
  - Weight increased [Unknown]
  - Hypothyroidism [Unknown]
  - Hyperlipidaemia [Unknown]
  - Migraine [Unknown]
  - Gastrooesophageal reflux disease [Unknown]
  - Off label use [Unknown]
  - Off label use [Unknown]
